FAERS Safety Report 4918211-5 (Version None)
Quarter: 2006Q1

REPORT INFORMATION
  Report Type: 
  Country: None (occurrence: None)
  Receive Date: 20060214
  Receipt Date: 20060210
  Transmission Date: 20060701
  Serious: Yes (Other)
  Sender: FDA-Public Use
  Company Number: DEWYE032205OCT05

PATIENT
  Sex: Female

DRUGS (1)
  1. VENLAFAXINE HCL [Suspect]
     Dosage: 75 MG 2 TIMES PER DAY ORAL
     Route: 048
     Dates: start: 20030101, end: 20050301

REACTIONS (1)
  - LUNG NEOPLASM [None]
